FAERS Safety Report 4908968-1 (Version None)
Quarter: 2006Q1

REPORT INFORMATION
  Report Type: 
  Country: None (occurrence: None)
  Receive Date: 20060210
  Receipt Date: 20060210
  Transmission Date: 20060701
  Serious: No
  Sender: FDA-Public Use
  Company Number: None

PATIENT
  Sex: Female
  Weight: 66.2252 kg

DRUGS (1)
  1. YASMIN NORMAL SCHERING [Suspect]
     Indication: CONTRACEPTION
     Dosage: AS PRESCRIBED 1 TABLET/DAY PO
     Route: 048

REACTIONS (11)
  - ANXIETY [None]
  - CHEST DISCOMFORT [None]
  - CHEST PAIN [None]
  - COLD SWEAT [None]
  - CRYING [None]
  - DEPRESSION [None]
  - FATIGUE [None]
  - MIGRAINE [None]
  - NAUSEA [None]
  - PALPITATIONS [None]
  - SCREAMING [None]
